FAERS Safety Report 25884996 (Version 1)
Quarter: 2025Q4

REPORT INFORMATION
  Report Type: Spontaneous
  Country: US (occurrence: US)
  Receive Date: 20251006
  Receipt Date: 20251006
  Transmission Date: 20260117
  Serious: No
  Sender: BAYER HEALTHCARE LLC
  Company Number: US-BAYER-2025A131661

PATIENT

DRUGS (1)
  1. MIRALAX [Suspect]
     Active Substance: POLYETHYLENE GLYCOL 3350
     Indication: Colonoscopy
     Dosage: UNK,  TAKE THE WHOLE BOTTLE (8.3OZ) ALONG WITH 64OZ OF A SPORTS DRINK IN A DAY-AND-A-HALF PERIOD
     Route: 048
     Dates: start: 20251002, end: 20251003

REACTIONS (3)
  - Increased dose administered [None]
  - Product prescribing issue [Unknown]
  - Product prescribing issue [Unknown]

NARRATIVE: CASE EVENT DATE: 20251002
